FAERS Safety Report 9717426 (Version 2)
Quarter: 2015Q3

REPORT INFORMATION
  Report Type: Spontaneous
  Country: US (occurrence: US)
  Receive Date: 20131127
  Receipt Date: 20150803
  Transmission Date: 20151125
  Serious: No
  Sender: FDA-Public Use
  Company Number: US-GILEAD-2009-0019682

PATIENT
  Age: 60 Year
  Sex: Female
  Weight: 61.23 kg

DRUGS (13)
  1. ARMOUR [Concomitant]
  2. CHOLESTYRAMINE. [Concomitant]
     Active Substance: CHOLESTYRAMINE
  3. ALBUTEROL. [Concomitant]
     Active Substance: ALBUTEROL
  4. CORTIZONE 10 [Concomitant]
     Active Substance: HYDROCORTISONE
  5. LETAIRIS [Suspect]
     Active Substance: AMBRISENTAN
     Indication: PULMONARY ARTERIAL HYPERTENSION
     Route: 048
     Dates: start: 20081230
  6. LASIX [Concomitant]
     Active Substance: FUROSEMIDE
  7. PROZAC [Concomitant]
     Active Substance: FLUOXETINE HYDROCHLORIDE
  8. XANAX [Concomitant]
     Active Substance: ALPRAZOLAM
  9. SULFASALAZINE. [Concomitant]
     Active Substance: SULFASALAZINE
  10. BROVANA [Concomitant]
     Active Substance: ARFORMOTEROL TARTRATE
  11. SPIRIVA [Concomitant]
     Active Substance: TIOTROPIUM BROMIDE MONOHYDRATE
  12. TEMAZEPAM. [Concomitant]
     Active Substance: TEMAZEPAM
  13. HYDROXYZINE [Concomitant]
     Active Substance: HYDROXYZINE\HYDROXYZINE HYDROCHLORIDE

REACTIONS (1)
  - Oedema [Unknown]
